FAERS Safety Report 21492615 (Version 1)
Quarter: 2022Q4

REPORT INFORMATION
  Report Type: Spontaneous
  Country: US (occurrence: US)
  Receive Date: 20221021
  Receipt Date: 20221021
  Transmission Date: 20230112
  Serious: Yes (Other)
  Sender: FDA-Public Use
  Company Number: US-PFIZER INC-202201236955

PATIENT
  Sex: Female

DRUGS (1)
  1. PAXLOVID [Suspect]
     Active Substance: NIRMATRELVIR\RITONAVIR
     Indication: COVID-19 treatment
     Dosage: UNK
     Dates: start: 202210, end: 202210

REACTIONS (19)
  - Vomiting [Unknown]
  - Nausea [Unknown]
  - Nasal congestion [Unknown]
  - Dyspnoea [Unknown]
  - Dysgeusia [Unknown]
  - Diarrhoea [Unknown]
  - Decreased appetite [Recovered/Resolved]
  - Influenza [Unknown]
  - Burning sensation [Unknown]
  - Gastrooesophageal reflux disease [Unknown]
  - Throat irritation [Unknown]
  - Irritability [Unknown]
  - Dyspepsia [Unknown]
  - Oesophageal pain [Unknown]
  - Dry throat [Unknown]
  - Malaise [Unknown]
  - Insomnia [Unknown]
  - Nasal oedema [Recovering/Resolving]
  - Cough [Not Recovered/Not Resolved]
